FAERS Safety Report 15758376 (Version 1)
Quarter: 2018Q4

REPORT INFORMATION
  Report Type: Spontaneous
  Country: IT (occurrence: IT)
  Receive Date: 20181225
  Receipt Date: 20181225
  Transmission Date: 20190205
  Serious: Yes (Death, Other)
  Sender: FDA-Public Use
  Company Number: IT-ASTRAZENECA-2018SF67617

PATIENT
  Age: 48 Year
  Sex: Female

DRUGS (1)
  1. OLAPARIB. [Suspect]
     Active Substance: OLAPARIB
     Route: 048
     Dates: start: 20180611, end: 20180830

REACTIONS (4)
  - Subileus [Unknown]
  - Malignant neoplasm progression [Unknown]
  - Death [Fatal]
  - Ascites [Unknown]

NARRATIVE: CASE EVENT DATE: 201812
